FAERS Safety Report 8406025-3 (Version None)
Quarter: 2012Q2

REPORT INFORMATION
  Report Type: 
  Country: None (occurrence: None)
  Receive Date: 20120604
  Receipt Date: 20120524
  Transmission Date: 20120825
  Serious: Yes (Hospitalization, Other)
  Sender: FDA-Public Use
  Company Number: US-JNJFOC-20111205910

PATIENT
  Sex: Male

DRUGS (3)
  1. LEVAQUIN [Suspect]
     Indication: CYST
     Route: 048
     Dates: start: 20071201
  2. CIPROFLOXACIN [Suspect]
     Indication: PROSTATOMEGALY
     Route: 065
  3. LEVAQUIN [Suspect]
     Indication: CELLULITIS
     Route: 048
     Dates: start: 20071201

REACTIONS (2)
  - ROTATOR CUFF SYNDROME [None]
  - DEPRESSION [None]
